FAERS Safety Report 5798490-5 (Version None)
Quarter: 2008Q3

REPORT INFORMATION
  Report Type: 
  Country: None (occurrence: None)
  Receive Date: 20080702
  Receipt Date: 20080618
  Transmission Date: 20090109
  Serious: Yes (Other)
  Sender: FDA-Public Use
  Company Number: PHHY2008JP03086

PATIENT
  Sex: Male
  Weight: 44 kg

DRUGS (10)
  1. SANDOSTATIN [Suspect]
     Indication: PANCREATIC LEAK
     Dosage: 100 UG/DAY
     Route: 058
     Dates: start: 20080301, end: 20080303
  2. SULPERAZON [Concomitant]
     Indication: INFECTION PROPHYLAXIS
     Dosage: 2 G
     Route: 042
     Dates: start: 20080222, end: 20080307
  3. TANATRIL [Concomitant]
     Indication: HYPERTENSION
     Dosage: 5 MG
     Route: 048
     Dates: start: 20080222, end: 20080304
  4. CONIEL [Concomitant]
     Indication: HYPERTENSION
     Dosage: 4 MG
     Route: 048
     Dates: start: 20080222, end: 20080304
  5. FAMOTIDINE [Concomitant]
     Indication: ANTACID THERAPY
     Dosage: 40 MG
     Route: 048
     Dates: start: 20080222, end: 20080304
  6. PENTAGIN [Concomitant]
     Indication: ABDOMINAL PAIN
     Dosage: UNK
     Route: 030
     Dates: start: 20080229, end: 20080304
  7. ATARAX [Concomitant]
     Indication: ABDOMINAL PAIN
     Dosage: UNK
     Route: 030
     Dates: start: 20080229, end: 20080302
  8. NAFAMOSTAT [Concomitant]
     Dosage: 20 MG
     Route: 042
     Dates: start: 20080222, end: 20080225
  9. FUTHAN [Concomitant]
     Indication: PANCREATITIS ACUTE
     Dosage: 200 MG
     Route: 042
     Dates: start: 20080226, end: 20080303
  10. AMOBAN [Concomitant]
     Indication: INSOMNIA
     Dosage: UNK
     Route: 048
     Dates: start: 20080302, end: 20080302

REACTIONS (11)
  - ABDOMINAL PAIN UPPER [None]
  - AGITATION [None]
  - ALTERED STATE OF CONSCIOUSNESS [None]
  - BACK PAIN [None]
  - DELIRIUM [None]
  - DISORIENTATION [None]
  - FALL [None]
  - HYPONATRAEMIA [None]
  - INAPPROPRIATE ANTIDIURETIC HORMONE SECRETION [None]
  - INSOMNIA [None]
  - OXYGEN SATURATION DECREASED [None]
